FAERS Safety Report 8809451 (Version 1)
Quarter: 2012Q4

REPORT INFORMATION
  Report Type: 
  Country: JP (occurrence: JP)
  Receive Date: 20120926
  Receipt Date: 20120926
  Transmission Date: 20130627
  Serious: Yes (Other)
  Sender: FDA-Public Use
  Company Number: JP-ROCHE-1132580

PATIENT
  Age: 85 Year
  Sex: Male

DRUGS (7)
  1. ALTEPLASE [Suspect]
     Indication: EMBOLIC STROKE
     Route: 042
     Dates: start: 20120723, end: 20120723
  2. RADICUT [Suspect]
     Indication: EMBOLIC STROKE
     Route: 042
     Dates: start: 20120723, end: 20120727
  3. SOLDEM [Suspect]
     Indication: FLUID REPLACEMENT
     Route: 042
     Dates: start: 20120726, end: 20120808
  4. XARELTO [Suspect]
     Indication: EMBOLIC STROKE
     Route: 048
     Dates: start: 20120724, end: 20120727
  5. XARELTO [Suspect]
     Route: 065
     Dates: start: 20120803
  6. LASIX [Suspect]
     Indication: HYPERTENSION
     Route: 048
     Dates: start: 20120803
  7. ADALAT CR [Suspect]
     Indication: HYPERTENSION
     Route: 048
     Dates: start: 20120803

REACTIONS (1)
  - Renal impairment [Recovering/Resolving]
